FAERS Safety Report 5711120-3 (Version None)
Quarter: 2008Q2

REPORT INFORMATION
  Report Type: 
  Country: None (occurrence: None)
  Receive Date: 20080417
  Receipt Date: 20080417
  Transmission Date: 20081010
  Serious: Yes (Other)
  Sender: FDA-Public Use
  Company Number: None

PATIENT
  Sex: Male
  Weight: 91.6266 kg

DRUGS (8)
  1. DEPAKOTE [Suspect]
     Indication: SCHIZOAFFECTIVE DISORDER
     Dosage: 500MG AM, 1000MG PM DAILY
     Dates: start: 20070926, end: 20071217
  2. ABILIFY [Concomitant]
  3. LEXIPRO [Concomitant]
  4. PROLIXIN [Concomitant]
  5. RISPERDAL [Concomitant]
  6. GEODON [Concomitant]
  7. LAMICTAL [Concomitant]
  8. SEROQUEL XR [Concomitant]

REACTIONS (6)
  - BLOOD TRIGLYCERIDES INCREASED [None]
  - DRUG INEFFECTIVE [None]
  - HIGH DENSITY LIPOPROTEIN DECREASED [None]
  - LOW DENSITY LIPOPROTEIN INCREASED [None]
  - SKIN STRIAE [None]
  - WEIGHT INCREASED [None]
